FAERS Safety Report 9958512 (Version 1)
Quarter: 2014Q1

REPORT INFORMATION
  Report Type: Spontaneous
  Country: GB (occurrence: GB)
  Receive Date: 20140305
  Receipt Date: 20140305
  Transmission Date: 20141002
  Serious: Yes (Other)
  Sender: FDA-Public Use
  Company Number: GB-AMGEN-GBRSP2014014286

PATIENT
  Age: 86 Year
  Sex: Female
  Weight: 60 kg

DRUGS (6)
  1. PROLIA [Suspect]
     Indication: OSTEOARTHRITIS
     Dosage: 60 MG, UNK
     Route: 058
     Dates: start: 20120509, end: 20131216
  2. ADCAL D3 [Concomitant]
     Indication: OSTEOPOROSIS
     Dosage: 2 DF, UNK
     Route: 048
     Dates: start: 2004
  3. ALENDRONIC ACID [Concomitant]
     Indication: OSTEOPOROSIS
     Dosage: 70 MG, QWK
     Route: 048
     Dates: start: 2004, end: 201205
  4. DIAZEPAM [Concomitant]
     Indication: ANXIETY
     Dosage: 2 MG, UNK
     Route: 048
     Dates: start: 20080403
  5. FLUOXETINE [Concomitant]
     Indication: DEPRESSION
     Dosage: 20 MG, UNK
     Route: 048
     Dates: start: 20121102
  6. MIRTAZAPINE [Concomitant]
     Indication: DEPRESSION
     Dosage: 30 MG, UNK
     Route: 048
     Dates: start: 20121128

REACTIONS (1)
  - Granuloma annulare [Not Recovered/Not Resolved]
